FAERS Safety Report 5461040-7 (Version None)
Quarter: 2007Q3

REPORT INFORMATION
  Report Type: 
  Country: None (occurrence: None)
  Receive Date: 20070810
  Receipt Date: 20060725
  Transmission Date: 20080115
  Serious: Yes (Death)
  Sender: FDA-Public Use
  Company Number: 200614365BWH

PATIENT
  Sex: Male

DRUGS (2)
  1. TRASYLOL [Suspect]
     Indication: AORTIC VALVE REPLACEMENT
     Dosage: 1 ML, ONCE, INTRAVENOUS; 10 ML, ONCE, INTRAVENOS
     Route: 042
  2. TRASYLOL [Suspect]
     Indication: HEART VALVE INCOMPETENCE
     Dosage: 1 ML, ONCE, INTRAVENOUS; 10 ML, ONCE, INTRAVENOS
     Route: 042

REACTIONS (5)
  - ANAPHYLACTIC SHOCK [None]
  - BLOOD PRESSURE DECREASED [None]
  - CIRCULATORY COLLAPSE [None]
  - HYPERSENSITIVITY [None]
  - VASCULAR RESISTANCE SYSTEMIC DECREASED [None]
